FAERS Safety Report 5334232-5 (Version None)
Quarter: 2007Q2

REPORT INFORMATION
  Report Type: 
  Country: None (occurrence: None)
  Receive Date: 20070525
  Receipt Date: 20061127
  Transmission Date: 20071010
  Serious: No
  Sender: FDA-Public Use
  Company Number: A0626560A

PATIENT
  Age: 42 Year
  Sex: Male

DRUGS (1)
  1. BACTROBAN [Suspect]
     Indication: SKIN INFECTION
     Dosage: 2PCT TWICE PER DAY
     Route: 061
     Dates: start: 20061028, end: 20061030

REACTIONS (2)
  - HYPERSENSITIVITY [None]
  - RASH [None]
